FAERS Safety Report 9899914 (Version 1)
Quarter: 2014Q1

REPORT INFORMATION
  Report Type: Not Available
  Country: US (occurrence: US)
  Receive Date: 20140214
  Receipt Date: 20140214
  Transmission Date: 20141002
  Serious: No
  Sender: FDA-Public Use
  Company Number: US-VIVUS-2013V1000802

PATIENT
  Sex: Female
  Weight: 114.41 kg

DRUGS (5)
  1. QSYMIA 3.75MG/23MG [Suspect]
     Indication: WEIGHT DECREASED
     Dosage: STARTED THE FIRST PART OF 2013
     Route: 048
     Dates: start: 2013, end: 2013
  2. QSYMIA 7.5MG/46MG [Suspect]
     Indication: WEIGHT DECREASED
     Dosage: TAKEN FOR APPROXIMATELY ONE MONTH
     Route: 048
     Dates: start: 2013, end: 2013
  3. QSYMIA 7.5MG/46MG [Suspect]
     Dosage: STARTED AROUND 20 DAYS AGO
     Route: 048
     Dates: start: 201310
  4. UNKNOWN MEDICATIONS FOR BLOOD PRESSURE X 2 [Concomitant]
     Indication: HYPERTENSION
  5. OTHER MEDICATIONS [Concomitant]
     Indication: PRODUCT USED FOR UNKNOWN INDICATION
     Dosage: PATIENT REPORTED THAT SHE TAKES OTHER?MEDICATION BUT SINCE SHE WAS AT THE?PHARMACY, SHE DID NOT WANT

REACTIONS (1)
  - Headache [Not Recovered/Not Resolved]
